FAERS Safety Report 5656437-6 (Version None)
Quarter: 2008Q1

REPORT INFORMATION
  Report Type: 
  Country: None (occurrence: None)
  Receive Date: 20080309
  Receipt Date: 20080109
  Transmission Date: 20080703
  Serious: No
  Sender: FDA-Public Use
  Company Number: US-BAYER-200810209BCC

PATIENT
  Age: 21 Year
  Sex: Female
  Weight: 75 kg

DRUGS (2)
  1. ALEVE COLD AND SINUS [Suspect]
     Indication: NASOPHARYNGITIS
     Route: 048
     Dates: start: 20080108, end: 20080108
  2. ALEVE COLD AND SINUS [Suspect]
     Route: 048
     Dates: start: 20080109

REACTIONS (1)
  - NASOPHARYNGITIS [None]
